FAERS Safety Report 16701642 (Version 2)
Quarter: 2019Q3

REPORT INFORMATION
  Report Type: Spontaneous
  Country: LB (occurrence: LB)
  Receive Date: 20190814
  Receipt Date: 20190821
  Transmission Date: 20191004
  Serious: Yes (Life-Threatening, Other)
  Sender: FDA-Public Use
  Company Number: LB-SUN PHARMACEUTICAL INDUSTRIES LTD-2019R1-216614

PATIENT
  Age: 31 Year
  Sex: Male

DRUGS (5)
  1. CYCLOPHOSPHAMIDE. [Concomitant]
     Active Substance: CYCLOPHOSPHAMIDE
     Indication: T-CELL LYMPHOMA
     Dosage: UNK
     Route: 065
  2. DOXORUBICIN [Suspect]
     Active Substance: DOXORUBICIN
     Indication: T-CELL LYMPHOMA
     Dosage: UNK
     Route: 065
  3. VINCRISTINE [Concomitant]
     Active Substance: VINCRISTINE
     Indication: T-CELL LYMPHOMA
     Dosage: UNK
     Route: 065
  4. METHOTREXATE. [Concomitant]
     Active Substance: METHOTREXATE
     Indication: STILL^S DISEASE
     Dosage: UNK
     Route: 065
  5. PREDNISONE. [Concomitant]
     Active Substance: PREDNISONE
     Indication: T-CELL LYMPHOMA
     Dosage: UNK
     Route: 065

REACTIONS (4)
  - Ejection fraction [Recovered/Resolved]
  - Systolic dysfunction [Recovered/Resolved]
  - Toxicity to various agents [Unknown]
  - Cardiogenic shock [Recovering/Resolving]
